FAERS Safety Report 5974844-9 (Version None)
Quarter: 2008Q4

REPORT INFORMATION
  Report Type: 
  Country: None (occurrence: None)
  Receive Date: 20081202
  Receipt Date: 20081128
  Transmission Date: 20090506
  Serious: Yes (Death, Hospitalization)
  Sender: FDA-Public Use
  Company Number: DK-PFIZER INC-2008101092

PATIENT
  Sex: Male
  Weight: 74 kg

DRUGS (2)
  1. ZARATOR [Suspect]
     Indication: HYPERLIPIDAEMIA
     Route: 048
     Dates: start: 20020101, end: 20080828
  2. ZOCOR [Suspect]
     Indication: HYPERLIPIDAEMIA
     Route: 048
     Dates: start: 19970731

REACTIONS (2)
  - MULTI-ORGAN FAILURE [None]
  - PANCREATITIS [None]
